FAERS Safety Report 6313739-8 (Version None)
Quarter: 2009Q3

REPORT INFORMATION
  Report Type: 
  Country: None (occurrence: None)
  Receive Date: 20090817
  Receipt Date: 20090817
  Transmission Date: 20100115
  Serious: No
  Sender: FDA-Public Use
  Company Number: None

PATIENT
  Sex: Female
  Weight: 56.6996 kg

DRUGS (1)
  1. FENTANYL [Suspect]
     Dosage: 1 PATCH EVERY 72 HOURS TRANSDERMAL
     Route: 062
     Dates: start: 20080701, end: 20090815

REACTIONS (5)
  - COGNITIVE DISORDER [None]
  - DEVICE LEAKAGE [None]
  - OVERDOSE [None]
  - PRODUCT QUALITY ISSUE [None]
  - SPEECH DISORDER [None]
